FAERS Safety Report 6487338-1 (Version None)
Quarter: 2009Q4

REPORT INFORMATION
  Report Type: 
  Country: None (occurrence: None)
  Receive Date: 20091210
  Receipt Date: 20091130
  Transmission Date: 20100525
  Serious: Yes (Other)
  Sender: FDA-Public Use
  Company Number: IT-JNJFOC-20091006036

PATIENT
  Age: 71 Year
  Sex: Female

DRUGS (8)
  1. REMICADE [Suspect]
     Route: 042
     Dates: start: 20020911, end: 20090107
  2. REMICADE [Suspect]
     Indication: RHEUMATOID ARTHRITIS
     Route: 042
     Dates: start: 20020911, end: 20090107
  3. METHOTREXATE [Suspect]
     Indication: RHEUMATOID ARTHRITIS
     Route: 048
     Dates: start: 20010220, end: 20090820
  4. FOSFOCRISOLO [Suspect]
     Indication: RHEUMATOID ARTHRITIS
     Route: 030
     Dates: start: 19820101, end: 20020718
  5. ENALAPRIL MALEATE [Concomitant]
     Route: 048
  6. FOLIC ACID [Concomitant]
     Route: 048
  7. FOSAVANCE [Concomitant]
     Route: 048
  8. MEPRAL [Concomitant]
     Route: 048

REACTIONS (1)
  - LYMPHOPROLIFERATIVE DISORDER [None]
